FAERS Safety Report 21066533 (Version 6)
Quarter: 2025Q1

REPORT INFORMATION
  Report Type: Spontaneous
  Country: US (occurrence: US)
  Receive Date: 20220711
  Receipt Date: 20250114
  Transmission Date: 20250408
  Serious: Yes (Hospitalization, Other)
  Sender: SANOFI AVENTIS
  Company Number: US-SA-SAC20220708000318

PATIENT
  Age: 61 Year
  Sex: Male
  Weight: 117.93 kg

DRUGS (42)
  1. DUPIXENT [Suspect]
     Active Substance: DUPILUMAB
     Indication: Asthma
     Dosage: 300 MG, QOW
     Route: 058
     Dates: start: 202104
  2. DUPIXENT [Suspect]
     Active Substance: DUPILUMAB
     Dosage: 300 MG, QOW
     Route: 058
     Dates: start: 202312
  3. EPINEPHRINE [Concomitant]
     Active Substance: EPINEPHRINE
  4. BUPROPION [Concomitant]
     Active Substance: BUPROPION
     Dosage: 450MG, 24 HR
  5. AMOXICILLIN [Concomitant]
     Active Substance: AMOXICILLIN
  6. METHOCARBAMOL [Concomitant]
     Active Substance: METHOCARBAMOL
  7. FASENRA [Concomitant]
     Active Substance: BENRALIZUMAB
  8. OZEMPIC [Concomitant]
     Active Substance: SEMAGLUTIDE
  9. ALBUTEROL\IPRATROPIUM [Concomitant]
     Active Substance: ALBUTEROL\IPRATROPIUM
  10. ALBUTEROL SULFATE [Concomitant]
     Active Substance: ALBUTEROL SULFATE
  11. SPIRIVA RESPIMAT [Concomitant]
     Active Substance: TIOTROPIUM BROMIDE
  12. ADVAIR HFA [Concomitant]
     Active Substance: FLUTICASONE PROPIONATE\SALMETEROL XINAFOATE
  13. ZOLPIDEM TARTRATE [Concomitant]
     Active Substance: ZOLPIDEM TARTRATE
  14. TAMSULOSIN HYDROCHLORIDE [Concomitant]
     Active Substance: TAMSULOSIN HYDROCHLORIDE
  15. MONTELUKAST SODIUM [Concomitant]
     Active Substance: MONTELUKAST SODIUM
  16. GUANFACINE HYDROCHLORIDE [Concomitant]
     Active Substance: GUANFACINE HYDROCHLORIDE
     Dosage: 3MG, 24 HR
  17. ATORVASTATIN CALCIUM [Concomitant]
     Active Substance: ATORVASTATIN CALCIUM
  18. XARELTO [Concomitant]
     Active Substance: RIVAROXABAN
  19. OMEPRAZOLE [Concomitant]
     Active Substance: OMEPRAZOLE
  20. METOPROLOL TARTRATE [Concomitant]
     Active Substance: METOPROLOL TARTRATE
  21. CLONAZEPAM [Concomitant]
     Active Substance: CLONAZEPAM
  22. TORSEMIDE [Concomitant]
     Active Substance: TORSEMIDE
  23. CALCIUM CHLORIDE [Concomitant]
     Active Substance: CALCIUM CHLORIDE
  24. DILTIAZEM [Concomitant]
     Active Substance: DILTIAZEM
  25. FARXIGA [Concomitant]
     Active Substance: DAPAGLIFLOZIN PROPANEDIOL
  26. DESVENLAFAXINE SUCCINATE [Concomitant]
     Active Substance: DESVENLAFAXINE SUCCINATE
  27. ASPIRIN [Concomitant]
     Active Substance: ASPIRIN
  28. OXYGEN [Concomitant]
     Active Substance: OXYGEN
  29. ALBUTEROL SULFATE [Concomitant]
     Active Substance: ALBUTEROL SULFATE
  30. VITAMINS NOS [Concomitant]
     Active Substance: VITAMINS
  31. STOOL SOFTENER (DOCUSATE) [Concomitant]
     Active Substance: DOCUSATE
  32. IPRATROPIUM [Concomitant]
     Active Substance: IPRATROPIUM
  33. ALBUTEROL [Concomitant]
     Active Substance: ALBUTEROL
  34. LINZESS [Concomitant]
     Active Substance: LINACLOTIDE
  35. PFIZERPEN [Concomitant]
     Active Substance: PENICILLIN G POTASSIUM
  36. COVID-19 VACCINE [Concomitant]
     Indication: COVID-19 prophylaxis
  37. VITAMIN D2 [Concomitant]
     Active Substance: ERGOCALCIFEROL
  38. DIAZEPAM [Concomitant]
     Active Substance: DIAZEPAM
  39. MOUNJARO [Concomitant]
     Active Substance: TIRZEPATIDE
  40. VITAMIN C [Concomitant]
     Active Substance: ASCORBIC ACID
  41. VITAMIN C [Concomitant]
     Active Substance: ASCORBIC ACID
  42. ZOLPIDEM TARTRATE [Concomitant]
     Active Substance: ZOLPIDEM TARTRATE

REACTIONS (10)
  - Microvascular coronary artery disease [Unknown]
  - Cardiac disorder [Unknown]
  - Neoplasm malignant [Unknown]
  - Impaired gastric emptying [Unknown]
  - Cerebral haemorrhage [Unknown]
  - Chronic obstructive pulmonary disease [Unknown]
  - Dyspnoea [Unknown]
  - COVID-19 [Recovering/Resolving]
  - Eating disorder [Unknown]
  - Abdominal discomfort [Unknown]
